FAERS Safety Report 6580173-5 (Version None)
Quarter: 2010Q1

REPORT INFORMATION
  Report Type: 
  Country: None (occurrence: None)
  Receive Date: 20100212
  Receipt Date: 20100205
  Transmission Date: 20100710
  Serious: Yes (Hospitalization)
  Sender: FDA-Public Use
  Company Number: US-WATSON-2010-01614

PATIENT
  Age: 43 Year
  Sex: Male

DRUGS (1)
  1. PROPRANOLOL [Suspect]
     Indication: ANGINA PECTORIS
     Dosage: 20 MG, Q6H

REACTIONS (3)
  - ASCITES [None]
  - SCLEROSING ENCAPSULATING PERITONITIS [None]
  - SMALL INTESTINAL OBSTRUCTION [None]
